FAERS Safety Report 9278981 (Version 2)
Quarter: 2013Q2

REPORT INFORMATION
  Report Type: Spontaneous
  Country: US (occurrence: US)
  Receive Date: 20130508
  Receipt Date: 20130528
  Transmission Date: 20140414
  Serious: Yes (Death, Hospitalization)
  Sender: FDA-Public Use
  Company Number: US-JNJFOC-20130502313

PATIENT
  Sex: Female

DRUGS (6)
  1. STELARA [Suspect]
     Indication: PSORIASIS
     Route: 058
     Dates: start: 201210
  2. STELARA [Suspect]
     Indication: PSORIASIS
     Route: 058
     Dates: start: 20111028, end: 20120411
  3. PREDNISONE [Suspect]
     Indication: PSORIASIS
     Dosage: INITIATED YEARS AGO, AROUND 60-80 MG
     Route: 065
  4. METHOTREXATE [Suspect]
     Indication: PSORIASIS
     Dosage: USED FOR 2 YEARS
     Route: 065
     Dates: start: 201206, end: 201211
  5. ACCUTANE [Concomitant]
     Indication: PSORIASIS
     Dosage: 40 -80 MG (YEARS TO DEATH)
     Route: 065
  6. STEROIDS NOS [Concomitant]
     Indication: PRODUCT USED FOR UNKNOWN INDICATION
     Route: 065

REACTIONS (7)
  - Pneumocystis jirovecii pneumonia [Fatal]
  - Acute respiratory distress syndrome [Fatal]
  - Pneumonia streptococcal [Fatal]
  - Sepsis [Fatal]
  - Septic shock [Fatal]
  - Psoriasis [Unknown]
  - Drug dose omission [Unknown]
